FAERS Safety Report 4521895-7 (Version None)
Quarter: 2004Q4

REPORT INFORMATION
  Report Type: 
  Country: None (occurrence: None)
  Receive Date: 20041207
  Receipt Date: 20041123
  Transmission Date: 20050328
  Serious: Yes (Death)
  Sender: FDA-Public Use
  Company Number: USA-2004-0017808

PATIENT
  Age: 41 Year
  Sex: Female

DRUGS (1)
  1. OXYCONTIN [Suspect]

REACTIONS (1)
  - DEATH [None]
